FAERS Safety Report 8410894-0 (Version None)
Quarter: 2012Q2

REPORT INFORMATION
  Report Type: 
  Country: None (occurrence: None)
  Receive Date: 20120605
  Receipt Date: 20120530
  Transmission Date: 20120825
  Serious: Yes (Other)
  Sender: FDA-Public Use
  Company Number: PHEH2012US011074

PATIENT
  Sex: Female

DRUGS (5)
  1. DIOVAN [Suspect]
     Dosage: 160 MG, BID
  2. LANTUS [Concomitant]
     Dosage: 40 U- 5 U,DAILY
  3. DIOVAN [Suspect]
     Dosage: 160 MG, UNK
  4. METFORMIN HCL [Concomitant]
     Dosage: 1000 MG, QD
  5. LIPIZIDE [Concomitant]
     Dosage: 20 MG, QD

REACTIONS (3)
  - BLOOD GLUCOSE ABNORMAL [None]
  - BLOOD PRESSURE INADEQUATELY CONTROLLED [None]
  - PULMONARY HYPERTENSION [None]
